FAERS Safety Report 5211841-5 (Version None)
Quarter: 2007Q1

REPORT INFORMATION
  Report Type: 
  Country: None (occurrence: None)
  Receive Date: 20070116
  Receipt Date: 20070103
  Transmission Date: 20070707
  Serious: Yes (Life-Threatening, Hospitalization, Other)
  Sender: FDA-Public Use
  Company Number: HQWYE380203JAN07

PATIENT
  Age: 45 Year
  Sex: Male

DRUGS (4)
  1. ISOTEN (BISOPROLOL, TABLET) [Suspect]
     Dosage: TOOK 560 MG
  2. ADVIL [Suspect]
     Dosage: TOOK 6 G
  3. DILTIAZEM [Suspect]
     Dosage: TOOK ^8.40 G^
  4. VENLAFAXIINE HCL [Suspect]
     Dosage: TOOK ^2,10G^

REACTIONS (7)
  - CARDIAC ARREST [None]
  - CARDIOGENIC SHOCK [None]
  - HAEMORRHAGE [None]
  - HYPOTENSION [None]
  - HYPOXIA [None]
  - INTENTIONAL OVERDOSE [None]
  - RESPIRATORY FAILURE [None]
